FAERS Safety Report 11638952 (Version 1)
Quarter: 2015Q4

REPORT INFORMATION
  Report Type: Spontaneous
  Country: IT (occurrence: IT)
  Receive Date: 20151018
  Receipt Date: 20151018
  Transmission Date: 20160304
  Serious: Yes (Life-Threatening)
  Sender: FDA-Public Use
  Company Number: IT-TEVA-600835ACC

PATIENT
  Age: 68 Year
  Sex: Female
  Weight: 158 kg

DRUGS (2)
  1. GEMCITABINE [Suspect]
     Active Substance: GEMCITABINE\GEMCITABINE HYDROCHLORIDE
     Indication: PANCREATIC CARCINOMA
     Dosage: 1100 MG WEEKLY
     Route: 041
     Dates: start: 20150724
  2. ABRAXANE [Suspect]
     Active Substance: PACLITAXEL
     Indication: PANCREATIC CARCINOMA
     Dosage: 184 MG WEEKLY
     Route: 041
     Dates: start: 20150724

REACTIONS (6)
  - Diarrhoea [Recovering/Resolving]
  - Gastrointestinal toxicity [Recovering/Resolving]
  - White blood cell count decreased [None]
  - Haematotoxicity [Recovering/Resolving]
  - Haemoglobin decreased [None]
  - Platelet count decreased [None]

NARRATIVE: CASE EVENT DATE: 20150803
